FAERS Safety Report 4804279-3 (Version None)
Quarter: 2005Q4

REPORT INFORMATION
  Report Type: 
  Country: None (occurrence: None)
  Receive Date: 20051018
  Receipt Date: 20051018
  Transmission Date: 20060501
  Serious: Yes (Death)
  Sender: FDA-Public Use
  Company Number: None

PATIENT
  Age: 55 Year
  Sex: Female
  Weight: 22 kg

DRUGS (3)
  1. INFLIXIMAB (REMICADE) [Suspect]
     Indication: CROHN'S DISEASE
     Dosage: SINGLE 450 MG IV DOSE
     Route: 042
     Dates: start: 20041210
  2. AZATHIOPRINE [Concomitant]
  3. PREDNISONE TAB [Concomitant]

REACTIONS (4)
  - ASPERGILLOSIS [None]
  - COMA [None]
  - RESPIRATORY DISORDER [None]
  - RESPIRATORY FAILURE [None]
